FAERS Safety Report 12189761 (Version 1)
Quarter: 2016Q1

REPORT INFORMATION
  Report Type: Spontaneous
  Country: JP (occurrence: JP)
  Receive Date: 20160318
  Receipt Date: 20160318
  Transmission Date: 20160526
  Serious: Yes (Death)
  Sender: FDA-Public Use
  Company Number: JP-BEH-2016060410

PATIENT
  Age: 35 Year
  Sex: Male
  Weight: 38.1 kg

DRUGS (19)
  1. LOPEMIN CAP [Concomitant]
     Route: 048
     Dates: end: 20141122
  2. GASCON TAB [Concomitant]
     Route: 048
     Dates: end: 20141122
  3. SPIRONOLACTONE TAB [Concomitant]
     Route: 048
     Dates: start: 20150107
  4. ASPARA POTASSIUM TAB [Concomitant]
     Dosage: CONTINUED
     Route: 048
  5. TRAMCET COMBINATION TAB [Concomitant]
     Dosage: CONTINUED
     Route: 048
  6. ALDACTONE-A TAB [Concomitant]
     Route: 048
     Dates: end: 20141122
  7. NOVORAPID [Concomitant]
     Active Substance: INSULIN ASPART
     Dosage: CONTINUED
     Route: 051
     Dates: start: 20141201
  8. VANCOMYCIN [Concomitant]
     Active Substance: VANCOMYCIN
     Route: 051
     Dates: start: 20141127, end: 20141204
  9. ACTONEL [Concomitant]
     Active Substance: RISEDRONATE SODIUM
     Dosage: CONTINUED
     Route: 048
  10. ALBUMIN [Suspect]
     Active Substance: ALBUMIN (HUMAN)
     Indication: PRODUCT USED FOR UNKNOWN INDICATION
     Dosage: CONTINUED
     Route: 051
  11. HIZENTRA [Suspect]
     Active Substance: HUMAN IMMUNOGLOBULIN G
     Indication: PRIMARY IMMUNODEFICIENCY SYNDROME
     Dosage: START DOSE 10ML (30MIN), 15ML (45 MIN) ON 23-JUL-2014
     Dates: start: 20140716, end: 20150107
  12. ACINON TAB [Concomitant]
     Dosage: STARTED 23-JUL-20??
     Route: 048
  13. DORAL TAB [Concomitant]
     Route: 048
     Dates: end: 20141210
  14. PENTASA [Concomitant]
     Active Substance: MESALAMINE
     Route: 048
     Dates: end: 20141122
  15. FLUNITRAZEPAM TAB [Concomitant]
     Dosage: CONTINUED
     Route: 048
  16. DENOSINE [Concomitant]
     Active Substance: GANCICLOVIR
     Route: 041
     Dates: start: 20141128, end: 20141211
  17. PROMAC GRANULES 15% [Concomitant]
     Route: 048
     Dates: end: 20141122
  18. SANGLOPOR IV INFUSION 2.5 G [Suspect]
     Active Substance: HUMAN IMMUNOGLOBULIN G
     Indication: PRIMARY IMMUNODEFICIENCY SYNDROME
     Dosage: FROM NOV-2014 TO MAY-2015. 6 DOSES, AVERAGE DURATION 6 HOURS
     Route: 042
  19. TRAMCET COMBINATION TAB [Concomitant]
     Dosage: CONTINUED
     Route: 048

REACTIONS (5)
  - Respiratory tract infection [Fatal]
  - Bronchiectasis [Fatal]
  - Bacterial infection [Fatal]
  - Sepsis [Fatal]
  - Diarrhoea [Fatal]

NARRATIVE: CASE EVENT DATE: 20141123
